FAERS Safety Report 9424449 (Version 1)
Quarter: 2013Q3

REPORT INFORMATION
  Report Type: Spontaneous
  Country: ZA (occurrence: ZA)
  Receive Date: 20130729
  Receipt Date: 20130729
  Transmission Date: 20140515
  Serious: Yes (Hospitalization, Other)
  Sender: FDA-Public Use
  Company Number: ZA-ROCHE-1194981

PATIENT
  Age: 52 Year
  Sex: Female

DRUGS (2)
  1. AVASTIN [Suspect]
     Indication: PRODUCT USED FOR UNKNOWN INDICATION
     Route: 031
  2. AVASTIN [Suspect]
     Indication: OFF LABEL USE

REACTIONS (9)
  - Pneumonia [Unknown]
  - Blindness [Unknown]
  - Eye infection [Unknown]
  - Vision blurred [Unknown]
  - Eye pain [Unknown]
  - Headache [Unknown]
  - Nausea [Unknown]
  - Emotional disorder [Unknown]
  - Depression [Unknown]
